FAERS Safety Report 18432397 (Version 3)
Quarter: 2020Q4

REPORT INFORMATION
  Report Type: Other
  Country: US (occurrence: US)
  Receive Date: 20201027
  Receipt Date: 20201117
  Transmission Date: 20210114
  Serious: Yes (Hospitalization)
  Sender: FDA-Public Use
  Company Number: US-ROCHE-2684047

PATIENT
  Age: 52 Year
  Sex: Male
  Weight: 93.07 kg

DRUGS (3)
  1. OCREVUS [Suspect]
     Active Substance: OCRELIZUMAB
     Indication: PRIMARY PROGRESSIVE MULTIPLE SCLEROSIS
     Dosage: (PRESCRIBED 300 MG ON DAY1 AND DAY15 AND 600 MG ONCE IN 6 MONTHS )
     Route: 042
     Dates: start: 20200317
  2. OCREVUS [Suspect]
     Active Substance: OCRELIZUMAB
     Route: 042
     Dates: start: 202003
  3. CIALIS [Concomitant]
     Active Substance: TADALAFIL
     Indication: PAIN
     Route: 065

REACTIONS (3)
  - COVID-19 [Recovered/Resolved]
  - Pain [Recovering/Resolving]
  - Pneumonia [Recovered/Resolved]

NARRATIVE: CASE EVENT DATE: 20200908
